FAERS Safety Report 9780167 (Version 4)
Quarter: 2014Q1

REPORT INFORMATION
  Report Type: Report from Study
  Country: DE (occurrence: DE)
  Receive Date: 20131223
  Receipt Date: 20140124
  Transmission Date: 20141002
  Serious: Yes (Hospitalization)
  Sender: FDA-Public Use
  Company Number: PHHY2013DE147610

PATIENT
  Sex: Female
  Weight: 80 kg

DRUGS (4)
  1. AFINITOR [Suspect]
     Indication: BREAST CANCER METASTATIC
     Dosage: 10 MG, QD
     Route: 048
     Dates: start: 20131117, end: 20131216
  2. AFINITOR [Suspect]
     Dosage: 5 MG, QD
     Route: 048
     Dates: start: 20131217, end: 20140108
  3. AROMASIN [Suspect]
     Indication: BREAST CANCER METASTATIC
     Dosage: 25 MG, QD
     Route: 048
     Dates: start: 20131111, end: 20140108
  4. BISPHOSPHONATES [Concomitant]

REACTIONS (13)
  - General physical health deterioration [Recovering/Resolving]
  - Nausea [Recovering/Resolving]
  - Vomiting [Recovering/Resolving]
  - Decreased appetite [Not Recovered/Not Resolved]
  - Pain [Recovering/Resolving]
  - Ascites [Recovering/Resolving]
  - Pleural effusion [Not Recovered/Not Resolved]
  - Dyspnoea [Not Recovered/Not Resolved]
  - Anaemia [Recovering/Resolving]
  - Fatigue [Recovering/Resolving]
  - Malignant neoplasm progression [Not Recovered/Not Resolved]
  - Asthenia [Recovering/Resolving]
  - Weight decreased [Recovering/Resolving]
